FAERS Safety Report 6595933-4 (Version None)
Quarter: 2010Q1

REPORT INFORMATION
  Report Type: 
  Country: None (occurrence: None)
  Receive Date: 20100219
  Receipt Date: 20100219
  Transmission Date: 20100710
  Serious: Yes (Hospitalization)
  Sender: FDA-Public Use
  Company Number: None

PATIENT
  Age: 64 Year
  Sex: Male

DRUGS (1)
  1. ZOLEDRONIC [Suspect]
     Indication: PROSTATE CANCER METASTATIC
     Dosage: 3.5 MG OTHER IV
     Route: 042
     Dates: start: 20080801

REACTIONS (2)
  - DIALYSIS [None]
  - RENAL FAILURE ACUTE [None]
